FAERS Safety Report 8761044 (Version 1)
Quarter: 2012Q4

REPORT INFORMATION
  Report Type: 
  Country: US (occurrence: US)
  Receive Date: 20120830
  Receipt Date: 20120830
  Transmission Date: 20130627
  Serious: Yes (Death, Other)
  Sender: FDA-Public Use
  Company Number: US-NOVOPROD-358546

PATIENT
  Age: 58 Year
  Sex: Male
  Weight: 68.03 kg

DRUGS (1)
  1. NOVOSEVEN RT [Suspect]
     Indication: HAEMOPHILIA
     Dosage: UNK
     Route: 042
     Dates: start: 201205

REACTIONS (6)
  - Death [Fatal]
  - Renal failure [Unknown]
  - Gastric haemorrhage [Unknown]
  - Cerebral haemorrhage [Unknown]
  - Jaundice [Unknown]
  - Drug ineffective [Unknown]
